FAERS Safety Report 9440480 (Version 3)
Quarter: 2014Q4

REPORT INFORMATION
  Report Type: Spontaneous
  Country: US (occurrence: US)
  Receive Date: 20130801
  Receipt Date: 20141121
  Transmission Date: 20150529
  Serious: Yes (Death)
  Sender: FDA-Public Use
  Company Number: 20130355

PATIENT
  Age: 83 Year
  Sex: Female
  Weight: 50.2 kg

DRUGS (12)
  1. ASPIRIN (ACETYLSALICYLIC ACID) [Concomitant]
     Active Substance: ASPIRIN
  2. NATURALYTE [Suspect]
     Active Substance: ACETIC ACID\SODIUM ACETATE
  3. OPTIFLUX DIALYZER [Suspect]
     Active Substance: DEVICE
  4. METOPROLOL [Concomitant]
     Active Substance: METOPROLOL
  5. 2008K HEMODIALYSIS MACHINE [Suspect]
     Active Substance: DEVICE
  6. GRANUFLO [Suspect]
     Active Substance: ACETIC ACID\SODIUM ACETATE
  7. VENOFER [Suspect]
     Active Substance: IRON SUCROSE
     Indication: CHRONIC KIDNEY DISEASE
     Dosage: 50 MG ONCE A WEEK MIV PUSH.
     Dates: start: 20110615
  8. SALINE [Concomitant]
     Active Substance: SODIUM CHLORIDE
  9. EPOGEN [Concomitant]
     Active Substance: ERYTHROPOIETIN
  10. PHOSLO [Concomitant]
     Active Substance: CALCIUM ACETATE
  11. ZEMPLAR MULTIDOSE (PARICALCITOL) [Concomitant]
  12. LIPITOR [Concomitant]
     Active Substance: ATORVASTATIN CALCIUM

REACTIONS (4)
  - Cardiovascular disorder [None]
  - Unresponsive to stimuli [None]
  - Haemodialysis complication [None]
  - Mydriasis [None]

NARRATIVE: CASE EVENT DATE: 20110615
